FAERS Safety Report 9455475 (Version 5)
Quarter: 2013Q4

REPORT INFORMATION
  Report Type: Report from Study
  Country: GB (occurrence: GB)
  Receive Date: 20130813
  Receipt Date: 20131113
  Transmission Date: 20140711
  Serious: Yes (Hospitalization)
  Sender: FDA-Public Use
  Company Number: GB-JNJFOC-20130801849

PATIENT
  Age: 16 Year
  Sex: Male
  Weight: 46.6 kg

DRUGS (2)
  1. REMICADE [Suspect]
     Indication: CROHN^S DISEASE
     Route: 042
     Dates: start: 20120817, end: 20120927
  2. AZATHIOPRINE [Concomitant]
     Route: 065
     Dates: end: 201306

REACTIONS (2)
  - Crohn^s disease [Recovered/Resolved with Sequelae]
  - Anal abscess [Recovered/Resolved with Sequelae]
